FAERS Safety Report 8369180-X (Version None)
Quarter: 2012Q1

REPORT INFORMATION
  Report Type: 
  Country: None (occurrence: None)
  Receive Date: 20120323
  Receipt Date: 20111121
  Transmission Date: 20120608
  Serious: Yes (Other)
  Sender: FDA-Public Use
  Company Number: 163-21880-11113020

PATIENT
  Age: 77 Year
  Sex: Female
  Weight: 57.6068 kg

DRUGS (8)
  1. OMPRAZOLE (OMEPRAZOLE) [Concomitant]
  2. BENTYL [Concomitant]
  3. SYNTHROID [Concomitant]
  4. REVLIMID [Suspect]
     Indication: MULTIPLE MYELOMA
     Dosage: 10 MG, 1 IN 1 D, PO
     Route: 048
     Dates: start: 20110401
  5. ZETIA [Concomitant]
  6. SERTRALINE HYDROCHLORIDE [Concomitant]
  7. LORATADINE [Concomitant]
  8. PREDNISONE [Concomitant]

REACTIONS (1)
  - TREATMENT FAILURE [None]
